FAERS Safety Report 5660018-8 (Version None)
Quarter: 2008Q1

REPORT INFORMATION
  Report Type: 
  Country: None (occurrence: None)
  Receive Date: 20080311
  Receipt Date: 20070827
  Transmission Date: 20080703
  Serious: No
  Sender: FDA-Public Use
  Company Number: US-BAYER-200712769BCC

PATIENT
  Sex: Female
  Weight: 59 kg

DRUGS (1)
  1. ALEVE [Suspect]
     Indication: ARTHRITIS
     Route: 048
     Dates: start: 20070801

REACTIONS (3)
  - BLISTER [None]
  - HYPERSENSITIVITY [None]
  - RASH [None]
